FAERS Safety Report 7443686-X (Version None)
Quarter: 2011Q2

REPORT INFORMATION
  Report Type: 
  Country: None (occurrence: None)
  Receive Date: 20110428
  Receipt Date: 20110426
  Transmission Date: 20111010
  Serious: Yes (Other)
  Sender: FDA-Public Use
  Company Number: GB-PFIZER INC-2011045471

PATIENT
  Age: 76 Year
  Sex: Female
  Weight: 115 kg

DRUGS (19)
  1. SPIRONOLACTONE [Suspect]
     Dosage: UNK
     Dates: start: 20110218
  2. TIOTROPIUM BROMIDE [Concomitant]
     Dosage: UNK
     Dates: start: 20100108, end: 20110109
  3. ZOPICLONE [Concomitant]
     Dosage: UNK
     Dates: start: 20101105
  4. LOFEPRAMINE [Concomitant]
     Dosage: UNK
     Dates: start: 20101001, end: 20110201
  5. BETAMETHASONE [Concomitant]
     Dosage: UNK
     Dates: start: 20101207, end: 20110104
  6. DEPO-MEDROL [Concomitant]
     Dosage: UNK
     Dates: start: 20110127, end: 20110217
  7. FUROSEMIDE [Concomitant]
     Dosage: UNK
     Dates: start: 20101001
  8. OLANZAPINE [Concomitant]
     Dosage: UNK
     Dates: start: 20101207, end: 20110201
  9. SALBUTAMOL [Concomitant]
     Dosage: UNK
     Dates: start: 20101001
  10. ACETAMINOPHEN AND CODEINE PHOSPHATE [Concomitant]
     Dosage: UNK
     Dates: start: 20101207, end: 20110209
  11. SENNA [Concomitant]
     Dosage: UNK
     Dates: start: 20101207, end: 20110104
  12. SALMETEROL [Concomitant]
     Dosage: UNK
     Dates: start: 20091201, end: 20110109
  13. TRAVOPROST [Concomitant]
     Dosage: UNK
     Dates: start: 20091201
  14. VALSARTAN [Concomitant]
     Dosage: UNK
     Dates: start: 20100901
  15. CALCICHEW-D3 [Concomitant]
     Dosage: UNK
     Dates: start: 20101207, end: 20110104
  16. MACROGOL [Concomitant]
     Dosage: UNK
     Dates: start: 20101122, end: 20101222
  17. GLYCEROL [Concomitant]
     Dosage: UNK
     Dates: start: 20101123, end: 20101205
  18. PILOCARPINE [Concomitant]
     Dosage: UNK
     Dates: start: 20101207, end: 20110104
  19. VERAPAMIL [Concomitant]
     Dosage: UNK
     Dates: start: 20100108, end: 20110109

REACTIONS (1)
  - GLOMERULAR FILTRATION RATE DECREASED [None]
